FAERS Safety Report 19295013 (Version 1)
Quarter: 2021Q2

REPORT INFORMATION
  Report Type: Spontaneous
  Country: AT (occurrence: AT)
  Receive Date: 20210524
  Receipt Date: 20210524
  Transmission Date: 20210717
  Serious: Yes (Hospitalization)
  Sender: FDA-Public Use
  Company Number: AT-SAMSUNG BIOEPIS-SB-2021-12066

PATIENT
  Age: 40 Year
  Sex: Female
  Weight: 60 kg

DRUGS (20)
  1. PARKEMED [Concomitant]
     Active Substance: MEFENAMIC ACID
     Indication: DENTAL FISTULA
     Dosage: UNKNOWN
     Route: 065
     Dates: start: 20170315, end: 20200417
  2. PERTUZUMAB. [Suspect]
     Active Substance: PERTUZUMAB
     Dosage: MOST RECENT DOSE ON 27?DEC?2019, INFUSION, SOLUTION
     Route: 042
     Dates: start: 201811
  3. LETROZOLE. [Suspect]
     Active Substance: LETROZOLE
     Indication: HER2 POSITIVE BREAST CANCER
     Route: 048
     Dates: start: 20180426
  4. FORTECORTIN [Concomitant]
     Active Substance: DEXAMETHASONE
     Indication: PRODUCT USED FOR UNKNOWN INDICATION
     Dosage: UNKNOWN
     Route: 065
     Dates: start: 20170330, end: 20200417
  5. MIRANAX [Concomitant]
     Indication: PRODUCT USED FOR UNKNOWN INDICATION
     Dosage: UNKNOWN
     Route: 065
     Dates: start: 20161115, end: 20200417
  6. TRASTUZUMAB EMTANSINE [Suspect]
     Active Substance: ADO-TRASTUZUMAB EMTANSINE
     Dosage: MOST RECENT DOSE PRIOR TO THE EVENT: 21/AUG/2017?MOST RECENT DOSE PRIOR TO THE EVENT: 22/MAY/2017
     Route: 042
     Dates: start: 20161114
  7. DENOSUMAB [Suspect]
     Active Substance: DENOSUMAB
     Indication: HER2 POSITIVE BREAST CANCER
     Dosage: UNKNOWN
     Route: 058
     Dates: start: 20190319
  8. MEXALEN [Concomitant]
     Active Substance: ACETAMINOPHEN
     Indication: METASTASES TO CENTRAL NERVOUS SYSTEM
     Dosage: UNKNOWN
     Route: 065
     Dates: start: 20170609, end: 20200417
  9. ZOFRAN [Concomitant]
     Active Substance: ONDANSETRON HYDROCHLORIDE
     Indication: PRODUCT USED FOR UNKNOWN INDICATION
     Dosage: UNKNOWN
     Route: 065
     Dates: start: 20161115, end: 20200417
  10. TRASTUZUMAB EMTANSINE [Suspect]
     Active Substance: ADO-TRASTUZUMAB EMTANSINE
     Dosage: UNKNOWN
     Route: 042
     Dates: start: 20170522
  11. PARKEMED [Concomitant]
     Active Substance: MEFENAMIC ACID
     Dosage: UNKNOWN
     Route: 065
     Dates: start: 20181113, end: 20181120
  12. DENOSUMAB [Suspect]
     Active Substance: DENOSUMAB
     Dosage: MOST RECENT DOSE OF DENOSUMAB 19?MAR?2019, 29?NOV?2018
     Route: 058
     Dates: start: 201611, end: 201904
  13. DENOSUMAB [Suspect]
     Active Substance: DENOSUMAB
     Dosage: UNKNOWN
     Route: 058
     Dates: start: 20181129
  14. PERTUZUMAB. [Suspect]
     Active Substance: PERTUZUMAB
     Indication: HER2 POSITIVE BREAST CANCER
     Dosage: MOST RECENT DOSE PRIOR TO THE EVENT: 22?NOV?2018, INFUSION, SOLUTION
     Route: 042
     Dates: start: 20181122
  15. LEUPRORELIN [Suspect]
     Active Substance: LEUPROLIDE ACETATE
     Indication: HER2 POSITIVE BREAST CANCER
     Route: 058
     Dates: start: 201804
  16. EMEND [Concomitant]
     Active Substance: APREPITANT
     Indication: PRODUCT USED FOR UNKNOWN INDICATION
     Dosage: ONGOING: CHECKED
     Route: 065
     Dates: start: 20161115, end: 20200417
  17. TRASTUZUMAB EMTANSINE [Suspect]
     Active Substance: ADO-TRASTUZUMAB EMTANSINE
     Indication: HER2 POSITIVE BREAST CANCER
     Route: 042
     Dates: start: 20161114
  18. TRASTUZUMAB EMTANSINE [Suspect]
     Active Substance: ADO-TRASTUZUMAB EMTANSINE
     Dosage: UNKNOWN
     Route: 042
     Dates: start: 20170821
  19. TRASTUZUMAB EMTANSINE [Suspect]
     Active Substance: ADO-TRASTUZUMAB EMTANSINE
     Route: 041
     Dates: start: 20180305
  20. TRASTUZUMAB. [Suspect]
     Active Substance: TRASTUZUMAB
     Indication: HER2 POSITIVE BREAST CANCER
     Dosage: MOST RECENT DOSE ON 27?DEC?2019
     Route: 041
     Dates: start: 20180503

REACTIONS (5)
  - Night sweats [Recovered/Resolved]
  - Dental fistula [Recovered/Resolved]
  - Vision blurred [Recovered/Resolved]
  - Chills [Recovered/Resolved]
  - Spinal pain [Recovered/Resolved]

NARRATIVE: CASE EVENT DATE: 20181112
